FAERS Safety Report 9716743 (Version 1)
Quarter: 2013Q4

REPORT INFORMATION
  Report Type: Spontaneous
  Country: MY (occurrence: None)
  Receive Date: 20131125
  Receipt Date: 20131125
  Transmission Date: 20140711
  Serious: Yes (Other)
  Sender: FDA-Public Use
  Company Number: 7250703

PATIENT
  Age: 48 Year
  Sex: Male

DRUGS (1)
  1. LEVOTHYROXIN [Suspect]
     Indication: HYPOTHYROIDISM

REACTIONS (11)
  - Pancytopenia [None]
  - Ataxia [None]
  - Anaemia megaloblastic [None]
  - Vitamin B12 deficiency [None]
  - Loss of proprioception [None]
  - Decreased vibratory sense [None]
  - Atrophic glossitis [None]
  - Blood lactate dehydrogenase increased [None]
  - Gastritis atrophic [None]
  - Gastric ulcer [None]
  - Pernicious anaemia [None]
